FAERS Safety Report 17311934 (Version 1)
Quarter: 2020Q1

REPORT INFORMATION
  Report Type: Spontaneous
  Country: US (occurrence: US)
  Receive Date: 20200123
  Receipt Date: 20200123
  Transmission Date: 20200409
  Serious: No
  Sender: FDA-Public Use
  Company Number: US-NOVOPROD-700094

PATIENT
  Age: 70 Year
  Sex: Male

DRUGS (4)
  1. LYRICA [Concomitant]
     Active Substance: PREGABALIN
     Indication: PHANTOM LIMB SYNDROME
  2. OZEMPIC [Suspect]
     Active Substance: SEMAGLUTIDE
     Indication: TYPE 2 DIABETES MELLITUS
     Dosage: FLUCTUATES BETWEEN 0.25 MG AND 0.5 MG
     Route: 058
     Dates: start: 20191015
  3. TRAMADOL. [Concomitant]
     Active Substance: TRAMADOL
     Indication: PHANTOM LIMB SYNDROME
     Dosage: UNK
  4. OXCARBAZEPINE. [Concomitant]
     Active Substance: OXCARBAZEPINE
     Indication: PHANTOM LIMB SYNDROME
     Dosage: UNK

REACTIONS (2)
  - Pain [Not Recovered/Not Resolved]
  - Off label use [Unknown]

NARRATIVE: CASE EVENT DATE: 2019
